FAERS Safety Report 10064867 (Version 1)
Quarter: 2014Q1

REPORT INFORMATION
  Report Type: Spontaneous
  Country: US (occurrence: None)
  Receive Date: 20140328
  Receipt Date: 20140328
  Transmission Date: 20141002
  Serious: No
  Sender: FDA-Public Use
  Company Number: 1000054435

PATIENT
  Age: 38 Year
  Sex: Female

DRUGS (3)
  1. LINZESS [Suspect]
     Indication: CONSTIPATION
     Dates: start: 20140130
  2. WELLBUTRIN (BUPROPION HYDROCHLORIDE) [Concomitant]
  3. TRAZODONE [Concomitant]

REACTIONS (1)
  - Constipation [None]
